FAERS Safety Report 5525365-9 (Version None)
Quarter: 2007Q4

REPORT INFORMATION
  Report Type: 
  Country: None (occurrence: None)
  Receive Date: 20071120
  Receipt Date: 20070904
  Transmission Date: 20080405
  Serious: No
  Sender: FDA-Public Use
  Company Number: US-1164033

PATIENT
  Age: 67 Year
  Sex: Male
  Weight: 83.9154 kg

DRUGS (9)
  1. NEVANAC [Suspect]
     Indication: EYE PAIN
     Dosage: OPHTHALMIC
     Route: 047
     Dates: start: 20070820, end: 20070831
  2. NEVANAC [Suspect]
     Indication: HEADACHE
     Dosage: OPHTHALMIC
     Route: 047
     Dates: start: 20070820, end: 20070831
  3. TRAVATAN [Concomitant]
  4. TOBRADEX [Concomitant]
  5. AVODART [Concomitant]
  6. ISTALOL [Concomitant]
  7. SYSTANE [Concomitant]
  8. NEXIUM [Concomitant]
  9. UROXATRAL [Concomitant]

REACTIONS (3)
  - ASTHENOPIA [None]
  - EYE PAIN [None]
  - HEADACHE [None]
